FAERS Safety Report 18933461 (Version 1)
Quarter: 2021Q1

REPORT INFORMATION
  Report Type: Spontaneous
  Country: OM (occurrence: OM)
  Receive Date: 20210224
  Receipt Date: 20210224
  Transmission Date: 20210420
  Serious: Yes (Life-Threatening, Hospitalization, Disabling, Other)
  Sender: FDA-Public Use
  Company Number: None

PATIENT
  Age: 41 Year
  Sex: Female
  Weight: 178 kg

DRUGS (2)
  1. CLOBETASOL OINTMENTS [Concomitant]
  2. ELIDEL [Suspect]
     Active Substance: PIMECROLIMUS

REACTIONS (15)
  - Bronchitis [None]
  - Oropharyngeal pain [None]
  - Skin discolouration [None]
  - Arthropathy [None]
  - Gastrointestinal disorder [None]
  - Dizziness [None]
  - Arthralgia [None]
  - Immune system disorder [None]
  - Haemorrhage [None]
  - Viral infection [None]
  - Swelling [None]
  - Headache [None]
  - Dyspnoea [None]
  - White blood cell count increased [None]
  - Asthenia [None]

NARRATIVE: CASE EVENT DATE: 20010910
